FAERS Safety Report 8856760 (Version 1)
Quarter: 2012Q4

REPORT INFORMATION
  Report Type: Spontaneous
  Country: CA (occurrence: None)
  Receive Date: 20121019
  Receipt Date: 20121019
  Transmission Date: 20130627
  Serious: Yes (Other)
  Sender: FDA-Public Use
  Company Number: SP06138

PATIENT
  Age: 73 Year
  Sex: Male

DRUGS (4)
  1. MOVIPREP (SOLUTION) [Suspect]
     Indication: BOWEL PREPARATION
     Route: 048
     Dates: start: 20120930, end: 20120930
  2. NEXIUM [Concomitant]
  3. CRESTOR [Concomitant]
  4. METOPROLOL [Concomitant]

REACTIONS (5)
  - Tinnitus [None]
  - Pharyngeal oedema [None]
  - Throat tightness [None]
  - Asthenia [None]
  - Hypersensitivity [None]
